FAERS Safety Report 4454266-2 (Version None)
Quarter: 2004Q3

REPORT INFORMATION
  Report Type: 
  Country: None (occurrence: None)
  Receive Date: 20040826
  Receipt Date: 20040621
  Transmission Date: 20050211
  Serious: No
  Sender: FDA-Public Use
  Company Number: WAES 0406USA01882

PATIENT
  Age: 40 Year
  Sex: Female

DRUGS (3)
  1. ZETIA [Suspect]
     Dosage: PO
     Route: 048
     Dates: start: 20040510, end: 20040601
  2. AVANDIA [Concomitant]
  3. PRINIVIL [Concomitant]

REACTIONS (1)
  - OEDEMA PERIPHERAL [None]
